FAERS Safety Report 15247872 (Version 2)
Quarter: 2018Q4

REPORT INFORMATION
  Report Type: Report from Study
  Country: None (occurrence: DE)
  Receive Date: 20180807
  Receipt Date: 20181212
  Transmission Date: 20190204
  Serious: Yes (Hospitalization, Other)
  Sender: FDA-Public Use
  Company Number: DE-ABBVIE-18K-062-2252200-00

PATIENT
  Sex: Female
  Weight: 65 kg

DRUGS (7)
  1. HUMIRA [Suspect]
     Active Substance: ADALIMUMAB
     Route: 058
     Dates: start: 2016, end: 20180113
  2. HUMIRA [Suspect]
     Active Substance: ADALIMUMAB
     Route: 058
     Dates: end: 201803
  3. L-THYROXIN [Concomitant]
     Active Substance: LEVOTHYROXINE SODIUM
     Indication: PRODUCT USED FOR UNKNOWN INDICATION
     Dosage: 1-0-0
     Dates: start: 2012
  4. HUMIRA [Suspect]
     Active Substance: ADALIMUMAB
     Indication: SPONDYLITIS
     Route: 058
     Dates: start: 2012, end: 2016
  5. HUMIRA [Suspect]
     Active Substance: ADALIMUMAB
     Indication: UVEITIS
     Route: 058
     Dates: end: 201801
  6. KREON [Concomitant]
     Active Substance: PANCRELIPASE
     Indication: PRODUCT USED FOR UNKNOWN INDICATION
     Dates: start: 2009
  7. HUMIRA [Suspect]
     Active Substance: ADALIMUMAB
     Route: 058

REACTIONS (15)
  - Alopecia [Recovered/Resolved]
  - Neuralgia [Unknown]
  - Uveitis [Recovered/Resolved]
  - Infection [Not Recovered/Not Resolved]
  - Androgens abnormal [Recovering/Resolving]
  - Groin abscess [Not Recovered/Not Resolved]
  - Bronchitis [Recovered/Resolved]
  - Stress urinary incontinence [Recovered/Resolved]
  - Depressed mood [Unknown]
  - Hypothyroidism [Unknown]
  - Subcutaneous abscess [Not Recovered/Not Resolved]
  - Injection site pain [Unknown]
  - Abscess [Not Recovered/Not Resolved]
  - Persistent depressive disorder [Unknown]
  - Skin bacterial infection [Not Recovered/Not Resolved]

NARRATIVE: CASE EVENT DATE: 2016
